FAERS Safety Report 8429446-1 (Version None)
Quarter: 2012Q2

REPORT INFORMATION
  Report Type: 
  Country: None (occurrence: None)
  Receive Date: 20120323
  Receipt Date: 20110420
  Transmission Date: 20120825
  Serious: Yes (Other)
  Sender: FDA-Public Use
  Company Number: 163-21880-11042946

PATIENT
  Sex: Male

DRUGS (1)
  1. REVLIMID [Suspect]
     Indication: B-CELL LYMPHOMA
     Dosage: 15 MG, DAILY FOR 7 DAYS THEN 14 DAYS OFF, PO
     Route: 048
     Dates: start: 20080724

REACTIONS (2)
  - B-CELL LYMPHOMA [None]
  - DISEASE PROGRESSION [None]
